FAERS Safety Report 21762550 (Version 6)
Quarter: 2023Q2

REPORT INFORMATION
  Report Type: Spontaneous
  Country: BE (occurrence: BE)
  Receive Date: 20221221
  Receipt Date: 20230502
  Transmission Date: 20230722
  Serious: Yes (Hospitalization, Other)
  Sender: FDA-Public Use
  Company Number: BE-HALEON-BECH2022GSK049225

PATIENT
  Age: 70 Year
  Sex: Female

DRUGS (11)
  1. ACETAMINOPHEN [Interacting]
     Active Substance: ACETAMINOPHEN
     Indication: Back pain
     Dosage: MAXIMUM 3 G PER DAY
     Route: 048
  2. FLUCLOXACILLIN [Interacting]
     Active Substance: FLUCLOXACILLIN
     Indication: Postoperative wound infection
     Dosage: 12 G, Q24H (FOR 1.5 MONTHS - ADMINISTRATION VIA PERIPHERALLY INSERTED CENTRAL CATHETER)
     Route: 042
  3. PANTOPRAZOLE [Concomitant]
     Active Substance: PANTOPRAZOLE
     Indication: Postoperative wound infection
     Dosage: UNK
     Route: 065
  4. GELATIN [Concomitant]
     Active Substance: GELATIN
     Indication: Antidiarrhoeal supportive care
     Dosage: UNK
     Route: 065
  5. GELATIN [Concomitant]
     Active Substance: GELATIN
     Indication: Diarrhoea
  6. FUROSEMIDE [Concomitant]
     Active Substance: FUROSEMIDE
     Indication: Postoperative wound infection
     Dosage: UNK
     Route: 065
  7. BISOPROLOL [Concomitant]
     Active Substance: BISOPROLOL
     Indication: Postoperative wound infection
     Dosage: UNK
     Route: 065
  8. BEFACT [Concomitant]
     Indication: Product used for unknown indication
     Dosage: UNK
     Route: 065
  9. AMILORIDE [Concomitant]
     Active Substance: AMILORIDE
     Indication: Postoperative wound infection
     Dosage: UNK
     Route: 065
  10. POTASSIUM GLUCONATE [Concomitant]
     Active Substance: POTASSIUM GLUCONATE
     Indication: Postoperative wound infection
     Dosage: UNK
     Route: 065
  11. ALPRAZOLAM [Concomitant]
     Active Substance: ALPRAZOLAM
     Indication: Postoperative wound infection
     Dosage: UNK
     Route: 065

REACTIONS (2)
  - Metabolic acidosis [Recovered/Resolved]
  - Hydroxyprolinuria [Recovered/Resolved]
